FAERS Safety Report 6318423-2 (Version None)
Quarter: 2009Q3

REPORT INFORMATION
  Report Type: 
  Country: None (occurrence: None)
  Receive Date: 20090821
  Receipt Date: 20090811
  Transmission Date: 20100115
  Serious: Yes (Death)
  Sender: FDA-Public Use
  Company Number: US-PFIZER INC-2009237242

PATIENT
  Sex: Female

DRUGS (9)
  1. REVATIO [Suspect]
     Indication: PULMONARY HYPERTENSION
     Dosage: 20 MG, 3X/DAY
  2. REVATIO [Suspect]
     Indication: CHRONIC OBSTRUCTIVE PULMONARY DISEASE
  3. ALLOPURINOL [Concomitant]
  4. ACETYLSALICYLIC ACID [Concomitant]
  5. BUMEX [Concomitant]
  6. CYCLOBENZAPRINE [Concomitant]
  7. DOXEPIN [Concomitant]
  8. OXYGEN [Concomitant]
  9. ATENOLOL [Concomitant]

REACTIONS (1)
  - CARDIAC ARREST [None]
